FAERS Safety Report 8134158-8 (Version None)
Quarter: 2012Q1

REPORT INFORMATION
  Report Type: 
  Country: None (occurrence: None)
  Receive Date: 20120213
  Receipt Date: 20120213
  Transmission Date: 20120608
  Serious: Yes (Life-Threatening)
  Sender: FDA-Public Use
  Company Number: None

PATIENT
  Age: 39 Year
  Sex: Male
  Weight: 84.1 kg

DRUGS (3)
  1. INCIVEK [Suspect]
     Dosage: 2 TABS Q8H PO
     Route: 048
     Dates: start: 20120204, end: 20120204
  2. PEGASYS [Concomitant]
  3. RIBAVIRIN [Suspect]
     Indication: HEPATITIS C
     Dosage: 3 TABS BID PO
     Route: 048
     Dates: start: 20120202, end: 20120204

REACTIONS (3)
  - HOMICIDAL IDEATION [None]
  - SUICIDAL IDEATION [None]
  - DEPRESSION [None]
